FAERS Safety Report 6125206-5 (Version None)
Quarter: 2009Q1

REPORT INFORMATION
  Report Type: 
  Country: None (occurrence: None)
  Receive Date: 20090318
  Receipt Date: 20090304
  Transmission Date: 20090719
  Serious: Yes (Hospitalization)
  Sender: FDA-Public Use
  Company Number: 8043907

PATIENT
  Age: 16 Year
  Sex: Male
  Weight: 71 kg

DRUGS (4)
  1. KEPPRA [Suspect]
     Indication: EPILEPSY
     Dosage: 250 MG 2/D PO
     Route: 048
     Dates: start: 20081101, end: 20081101
  2. TOPAMAX [Suspect]
     Indication: EPILEPSY
     Dosage: 100 MG 2/D PO
     Route: 048
     Dates: start: 20081101
  3. LAMICTAL [Suspect]
     Indication: EPILEPSY
     Dosage: 200 MG 2/D PO
     Route: 048
     Dates: start: 20081101
  4. CIPRALEX [Concomitant]

REACTIONS (5)
  - ANXIETY [None]
  - CONFUSIONAL STATE [None]
  - MENTAL DISORDER [None]
  - RESPIRATORY DISORDER [None]
  - RESTLESSNESS [None]
